FAERS Safety Report 9388859 (Version 2)
Quarter: 2013Q3

REPORT INFORMATION
  Report Type: Spontaneous
  Country: US (occurrence: US)
  Receive Date: 20130708
  Receipt Date: 20130718
  Transmission Date: 20140515
  Serious: Yes (Other)
  Sender: FDA-Public Use
  Company Number: CHPA2012US024886

PATIENT
  Sex: 0

DRUGS (2)
  1. EXCEDRIN EXTRA STRENGTH [Suspect]
     Indication: HEADACHE
     Dosage: 1 DF, PRN
     Route: 048
  2. BAYER ASPIRIN [Concomitant]
     Indication: PROPHYLAXIS
     Dosage: 162.5 MG, UNK
     Route: 048

REACTIONS (4)
  - Heart rate decreased [Recovered/Resolved]
  - Dizziness [Recovered/Resolved]
  - Underdose [Unknown]
  - Therapeutic response decreased [Unknown]
